FAERS Safety Report 7456460-5 (Version None)
Quarter: 2011Q2

REPORT INFORMATION
  Report Type: 
  Country: None (occurrence: None)
  Receive Date: 20110503
  Receipt Date: 20110428
  Transmission Date: 20111010
  Serious: Yes (Hospitalization)
  Sender: FDA-Public Use
  Company Number: US-AMGEN-USASP2011022447

PATIENT
  Age: 59 Year
  Sex: Male

DRUGS (3)
  1. RITUXIMAB [Concomitant]
  2. NPLATE [Suspect]
     Indication: IDIOPATHIC THROMBOCYTOPENIC PURPURA
     Dosage: UNK A?G, UNK
     Dates: start: 20110404
  3. CORTICOSTEROIDS [Concomitant]

REACTIONS (1)
  - HOSPITALISATION [None]
